FAERS Safety Report 18553995 (Version 4)
Quarter: 2022Q4

REPORT INFORMATION
  Report Type: Spontaneous
  Country: US (occurrence: US)
  Receive Date: 20201127
  Receipt Date: 20221216
  Transmission Date: 20230113
  Serious: Yes (Other)
  Sender: FDA-Public Use
  Company Number: US-PFIZER INC-2020384542

PATIENT
  Age: 79 Year
  Sex: Female
  Weight: 54.422 kg

DRUGS (3)
  1. IBRANCE [Suspect]
     Active Substance: PALBOCICLIB
     Indication: Breast cancer female
     Dosage: 100 MG, CYCLIC (3 WEEKS ON AND 1 WEEK OFF)
     Route: 048
     Dates: start: 20200911
  2. IBRANCE [Suspect]
     Active Substance: PALBOCICLIB
     Dosage: 100 MG
     Dates: start: 20201030
  3. IBRANCE [Suspect]
     Active Substance: PALBOCICLIB
     Dosage: 100 MG, CYCLIC (3 WEEKS ON AND 1 WEEK OFF)
     Route: 048
     Dates: start: 20201123

REACTIONS (6)
  - Cataract [Unknown]
  - Diarrhoea [Unknown]
  - Oral pain [Unknown]
  - White blood cell count increased [Unknown]
  - Neutrophil count increased [Unknown]
  - Therapeutic product effect incomplete [Unknown]

NARRATIVE: CASE EVENT DATE: 20201001
